FAERS Safety Report 4922980-8 (Version None)
Quarter: 2006Q1

REPORT INFORMATION
  Report Type: 
  Country: None (occurrence: None)
  Receive Date: 20060224
  Receipt Date: 20050406
  Transmission Date: 20060701
  Serious: Yes (Hospitalization, Disabling, Other)
  Sender: FDA-Public Use
  Company Number: US-MERCK-0504USA01103

PATIENT
  Age: 55 Year
  Sex: Male
  Weight: 118 kg

DRUGS (11)
  1. VIOXX [Suspect]
     Indication: ARTHRITIS
     Route: 048
     Dates: start: 20001011, end: 20020401
  2. VIOXX [Suspect]
     Route: 048
     Dates: start: 20020422, end: 20030301
  3. VIOXX [Suspect]
     Route: 048
     Dates: start: 20000601
  4. GLUCOTROL XL [Concomitant]
     Route: 048
     Dates: start: 19870101
  5. MONOPRIL [Concomitant]
     Route: 048
     Dates: start: 19990101
  6. ACTOS [Concomitant]
     Route: 048
     Dates: start: 19870101
  7. ALLEGRA [Concomitant]
     Route: 048
  8. NORVASC [Concomitant]
     Route: 048
     Dates: start: 20000501
  9. VIOXX [Suspect]
     Indication: PLANTAR FASCIITIS
     Route: 048
     Dates: start: 20001011, end: 20020401
  10. VIOXX [Suspect]
     Route: 048
     Dates: start: 20020422, end: 20030301
  11. VIOXX [Suspect]
     Route: 048
     Dates: start: 20000601

REACTIONS (11)
  - BASAL CELL CARCINOMA [None]
  - BENIGN PROSTATIC HYPERPLASIA [None]
  - CEREBROVASCULAR ACCIDENT [None]
  - DEPRESSION [None]
  - ERECTILE DYSFUNCTION [None]
  - HEADACHE [None]
  - HYPERLIPIDAEMIA [None]
  - HYPERTONIC BLADDER [None]
  - PULMONARY EMBOLISM [None]
  - TOOTH SOCKET HAEMORRHAGE [None]
  - URINARY INCONTINENCE [None]
